FAERS Safety Report 4949648-6 (Version None)
Quarter: 2006Q1

REPORT INFORMATION
  Report Type: 
  Country: None (occurrence: None)
  Receive Date: 20060316
  Receipt Date: 20060302
  Transmission Date: 20060701
  Serious: No
  Sender: FDA-Public Use
  Company Number: 06031713

PATIENT
  Age: 10 Year
  Sex: Female

DRUGS (1)
  1. OVIDE [Suspect]

REACTIONS (3)
  - ABDOMINAL PAIN [None]
  - DIZZINESS [None]
  - LETHARGY [None]
